FAERS Safety Report 13920861 (Version 1)
Quarter: 2017Q3

REPORT INFORMATION
  Report Type: Report from Study
  Country: None (occurrence: JP)
  Receive Date: 20170830
  Receipt Date: 20170830
  Transmission Date: 20171127
  Serious: Yes (Hospitalization, Other)
  Sender: FDA-Public Use
  Company Number: JP-VIFOR (INTERNATIONAL) INC.-VIT-2017-08866

PATIENT
  Age: 56 Year
  Sex: Male
  Weight: 77.1 kg

DRUGS (8)
  1. KAYEXALATE [Concomitant]
     Active Substance: SODIUM POLYSTYRENE SULFONATE
     Route: 048
  2. VELPHORO [Suspect]
     Active Substance: FERRIC OXYHYDROXIDE
     Route: 048
     Dates: start: 20170111, end: 20170125
  3. ADONA [Concomitant]
     Active Substance: CARBAZOCHROME SODIUM SULFONATE
     Route: 048
  4. VELPHORO [Suspect]
     Active Substance: FERRIC OXYHYDROXIDE
     Indication: HYPERPHOSPHATAEMIA
     Route: 048
     Dates: start: 20161111, end: 20161220
  5. CALTAN [Concomitant]
     Active Substance: CALCIUM CARBONATE
     Indication: HYPERPHOSPHATAEMIA
     Route: 048
  6. FAMOTIDINE. [Concomitant]
     Active Substance: FAMOTIDINE
     Route: 048
     Dates: end: 20161220
  7. FOSRENOL [Concomitant]
     Active Substance: LANTHANUM CARBONATE
     Indication: HYPERPHOSPHATAEMIA
     Route: 048
  8. NORVASC [Concomitant]
     Active Substance: AMLODIPINE BESYLATE
     Route: 048
     Dates: end: 20161220

REACTIONS (2)
  - Renal cyst infection [Recovered/Resolved]
  - Transferrin saturation increased [Recovered/Resolved]

NARRATIVE: CASE EVENT DATE: 20161220
